FAERS Safety Report 23085460 (Version 1)
Quarter: 2023Q4

REPORT INFORMATION
  Report Type: Spontaneous
  Country: OM (occurrence: OM)
  Receive Date: 20231019
  Receipt Date: 20231019
  Transmission Date: 20240109
  Serious: Yes (Death, Hospitalization, Other)
  Sender: FDA-Public Use
  Company Number: OM-PFIZER INC-202300329730

PATIENT
  Sex: Female

DRUGS (3)
  1. IBRANCE [Suspect]
     Active Substance: PALBOCICLIB
     Indication: Breast cancer metastatic
     Dosage: UNK, CYCLIC
  2. IBRANCE [Suspect]
     Active Substance: PALBOCICLIB
     Dosage: 2ND CYCLE
     Dates: start: 20230717
  3. FULVESTRANT [Suspect]
     Active Substance: FULVESTRANT
     Indication: Breast cancer metastatic
     Dosage: UNK, CYCLIC

REACTIONS (5)
  - Multiple organ dysfunction syndrome [Fatal]
  - Neutropenia [Unknown]
  - Pyrexia [Unknown]
  - Hypotension [Unknown]
  - Haematotoxicity [Unknown]
